FAERS Safety Report 7348581 (Version 4)
Quarter: 2012Q4

REPORT INFORMATION
  Report Type: Report from Study
  Country: US (occurrence: US)
  Receive Date: 20100408
  Receipt Date: 20120905
  Transmission Date: 20130627
  Serious: Yes (Death, Life-Threatening, Other)
  Sender: FDA-Public Use
  Company Number: US-ROCHE-695359

PATIENT
  Age: 67 Year
  Sex: Male
  Weight: 62.8 kg

DRUGS (17)
  1. AVASTIN [Suspect]
     Indication: NON-SMALL CELL LUNG CANCER
     Route: 042
     Dates: start: 20100225, end: 20100317
  2. PEMETREXED DISODIUM [Suspect]
     Indication: NON-SMALL CELL LUNG CANCER
     Route: 042
     Dates: start: 20100225, end: 20100317
  3. CARBOPLATIN [Suspect]
     Indication: NON-SMALL CELL LUNG CANCER
     Dosage: DOSE REPORTED: 6 D/F
     Route: 042
     Dates: start: 20100225, end: 20100317
  4. ACETAMINOFEN [Concomitant]
     Route: 065
  5. ALBUTEROL [Concomitant]
     Route: 065
  6. DEXAMETHASONE [Concomitant]
     Route: 065
  7. DURAGESIC [Concomitant]
     Route: 065
  8. LACTULOSE [Concomitant]
     Route: 065
  9. LATANOPROST [Concomitant]
     Route: 065
  10. ATIVAN [Concomitant]
     Route: 065
  11. ZOFRAN [Concomitant]
     Route: 065
  12. PRILOSEC [Concomitant]
     Route: 065
  13. OXYCODONE [Concomitant]
     Route: 065
  14. FLEXERIL [Concomitant]
     Route: 065
     Dates: start: 20100111, end: 20100317
  15. COMPAZINE [Concomitant]
     Route: 065
  16. FOLIC ACID [Concomitant]
     Route: 065
  17. VITAMIN B12 [Concomitant]
     Route: 065

REACTIONS (3)
  - Pulmonary haemorrhage [Fatal]
  - Haematemesis [Not Recovered/Not Resolved]
  - Cardiac arrest [Not Recovered/Not Resolved]
